FAERS Safety Report 4684196-2 (Version None)
Quarter: 2005Q2

REPORT INFORMATION
  Report Type: 
  Country: None (occurrence: None)
  Receive Date: 20050607
  Receipt Date: 20050520
  Transmission Date: 20051028
  Serious: Yes (Hospitalization)
  Sender: FDA-Public Use
  Company Number: 2005-05-0393

PATIENT
  Age: 15 Year
  Sex: Male

DRUGS (4)
  1. AUGMENTIN '125' [Suspect]
     Indication: OTITIS MEDIA ACUTE
     Dosage: 2G PER DAY
     Route: 065
     Dates: start: 20050425, end: 20050430
  2. AERIUS [Suspect]
     Dosage: 5MG PER DAY
     Route: 048
     Dates: start: 20050425, end: 20050428
  3. OKI [Suspect]
     Indication: HEADACHE
     Route: 048
     Dates: start: 20050430, end: 20050430
  4. CETIRIZINE HCL [Suspect]
     Indication: RHINITIS ALLERGIC
     Route: 048
     Dates: start: 20050429, end: 20050430

REACTIONS (2)
  - DYSLEXIA [None]
  - HEADACHE [None]
